FAERS Safety Report 4389848-X (Version None)
Quarter: 2004Q2

REPORT INFORMATION
  Report Type: 
  Country: None (occurrence: None)
  Receive Date: 20040628
  Receipt Date: 20040611
  Transmission Date: 20050107
  Serious: Yes (Hospitalization)
  Sender: FDA-Public Use
  Company Number: M-04-193

PATIENT
  Age: 47 Year
  Sex: Female

DRUGS (19)
  1. KLOR-CON [Suspect]
     Dosage: 60 MEQ QD PO
     Route: 048
     Dates: start: 20040201
  2. KLOR-CON (POTASSIUM CHLORIDE) M20 USL [Suspect]
     Dosage: MEQ QD PO
     Route: 048
     Dates: end: 20040201
  3. AMARYL [Concomitant]
  4. SKELAXIN [Concomitant]
  5. PHENERGAN [Concomitant]
  6. LEXAPRO [Concomitant]
  7. LEVOXYL [Concomitant]
  8. REQUIP [Concomitant]
  9. NEURONTIN [Concomitant]
  10. KLONOPIN [Concomitant]
  11. PROTONIX [Concomitant]
  12. VICODIN [Concomitant]
  13. ESTRACE [Concomitant]
  14. MACRODANTIN [Concomitant]
  15. LASIX [Concomitant]
  16. SPIRONOLACTONE [Concomitant]
  17. LANTUS [Concomitant]
  18. NOROLOG [Concomitant]
  19. DEPAKOTE [Concomitant]

REACTIONS (4)
  - BLOOD POTASSIUM DECREASED [None]
  - MYALGIA [None]
  - PRURITUS [None]
  - URTICARIA [None]
